FAERS Safety Report 9753267 (Version 1)
Quarter: 2013Q4

REPORT INFORMATION
  Report Type: Spontaneous
  Country: DE (occurrence: DE)
  Receive Date: 20131213
  Receipt Date: 20131213
  Transmission Date: 20140711
  Serious: Yes (Hospitalization)
  Sender: FDA-Public Use
  Company Number: DE-JNJFOC-20131205538

PATIENT
  Age: 33 Year
  Sex: Male

DRUGS (3)
  1. XARELTO [Suspect]
     Indication: EMBOLISM VENOUS
     Route: 048
     Dates: start: 201308
  2. XARELTO [Suspect]
     Indication: DEEP VEIN THROMBOSIS
     Route: 048
     Dates: start: 201308
  3. XARELTO [Suspect]
     Indication: PULMONARY EMBOLISM
     Route: 048
     Dates: start: 201308

REACTIONS (7)
  - Blood pressure increased [Unknown]
  - Chest discomfort [Unknown]
  - Epigastric discomfort [Unknown]
  - Paraesthesia [Unknown]
  - Chest discomfort [Unknown]
  - Medication error [Unknown]
  - Malaise [Unknown]
